FAERS Safety Report 24734642 (Version 2)
Quarter: 2025Q1

REPORT INFORMATION
  Report Type: Spontaneous
  Country: US (occurrence: US)
  Receive Date: 20241214
  Receipt Date: 20250223
  Transmission Date: 20250409
  Serious: No
  Sender: SANOFI AVENTIS
  Company Number: US-SA-2024SA367375

PATIENT
  Age: 49 Year
  Sex: Female

DRUGS (2)
  1. DUPIXENT [Suspect]
     Active Substance: DUPILUMAB
     Indication: Chronic rhinosinusitis with nasal polyps
     Dosage: 300 MG, QOW
     Route: 058
     Dates: start: 20240615, end: 202501
  2. DUPIXENT [Suspect]
     Active Substance: DUPILUMAB
     Dates: start: 2025

REACTIONS (6)
  - Joint swelling [Unknown]
  - Osteoarthritis [Unknown]
  - Arthralgia [Unknown]
  - Nasal congestion [Recovering/Resolving]
  - Condition aggravated [Recovering/Resolving]
  - Tendon injury [Unknown]

NARRATIVE: CASE EVENT DATE: 20240101
